FAERS Safety Report 26144998 (Version 1)
Quarter: 2025Q4

REPORT INFORMATION
  Report Type: Spontaneous
  Country: US (occurrence: US)
  Receive Date: 20251211
  Receipt Date: 20251211
  Transmission Date: 20260118
  Serious: No
  Sender: CIPLA
  Company Number: US-CIPLA LTD.-2025US15387

PATIENT

DRUGS (3)
  1. ALBUTEROL [Suspect]
     Active Substance: ALBUTEROL
     Indication: Asthma
     Dosage: 180 MICROGRAM, PRN, EVERY 6 HOURS AS NEEDED (REGULAR USER) (USED THE INHALER COUPLE OF YEARS BEFORE
     Route: 065
     Dates: start: 2023
  2. ALBUTEROL [Suspect]
     Active Substance: ALBUTEROL
     Indication: Influenza
     Dosage: 180 MICROGRAM, PRN, EVERY 6 HOURS AS NEEDED.
     Route: 065
     Dates: start: 20251128
  3. ALBUTEROL [Suspect]
     Active Substance: ALBUTEROL
     Indication: COVID-19

REACTIONS (5)
  - Drug dose omission by device [Unknown]
  - Device delivery system issue [Unknown]
  - Product packaging quantity issue [Unknown]
  - Product container seal issue [Unknown]
  - Off label use [Unknown]

NARRATIVE: CASE EVENT DATE: 20251128
